FAERS Safety Report 16145337 (Version 3)
Quarter: 2019Q2

REPORT INFORMATION
  Report Type: Spontaneous
  Country: JP (occurrence: JP)
  Receive Date: 20190402
  Receipt Date: 20190513
  Transmission Date: 20190711
  Serious: Yes (Disabling, Other)
  Sender: FDA-Public Use
  Company Number: JP-SA-2019SA083260

PATIENT
  Age: 18 Year
  Sex: Male

DRUGS (1)
  1. ALLEGRA [Suspect]
     Active Substance: FEXOFENADINE HYDROCHLORIDE
     Indication: ALOPECIA AREATA
     Dosage: 60 MG/DAY
     Route: 048
     Dates: start: 200801, end: 200803

REACTIONS (5)
  - Alopecia totalis [Not Recovered/Not Resolved]
  - Off label use [Unknown]
  - Alopecia areata [Not Recovered/Not Resolved]
  - Alopecia areata [Not Recovered/Not Resolved]
  - Condition aggravated [Not Recovered/Not Resolved]

NARRATIVE: CASE EVENT DATE: 200804
